FAERS Safety Report 18051548 (Version 1)
Quarter: 2020Q3

REPORT INFORMATION
  Report Type: Spontaneous
  Country: FR (occurrence: FR)
  Receive Date: 20200721
  Receipt Date: 20200721
  Transmission Date: 20201103
  Serious: Yes (Hospitalization)
  Sender: FDA-Public Use
  Company Number: FR-BAUSCH-BL-2020-020045

PATIENT
  Age: 36 Year
  Sex: Male

DRUGS (4)
  1. ACICLOVIR [Suspect]
     Active Substance: ACYCLOVIR
     Dosage: DOSE DECREASED TO 750MG
     Route: 042
     Dates: start: 20170607, end: 20170615
  2. OXACILLINE SODIQUE [Suspect]
     Active Substance: OXACILLIN SODIUM
     Indication: ENDOCARDITIS
     Dosage: 10 G/D
     Route: 042
     Dates: start: 20170606, end: 20170608
  3. ACICLOVIR [Suspect]
     Active Substance: ACYCLOVIR
     Indication: ENDOCARDITIS
     Route: 042
     Dates: start: 20170606, end: 20170606
  4. OXACILLINE SODIQUE [Suspect]
     Active Substance: OXACILLIN SODIUM
     Dosage: 8 G/D FROM 07/AUG/2017
     Route: 042
     Dates: start: 20170807

REACTIONS (1)
  - Acute kidney injury [Recovered/Resolved]

NARRATIVE: CASE EVENT DATE: 20170607
